FAERS Safety Report 23443074 (Version 1)
Quarter: 2024Q1

REPORT INFORMATION
  Report Type: Spontaneous
  Country: US (occurrence: None)
  Receive Date: 20240125
  Receipt Date: 20240125
  Transmission Date: 20240409
  Serious: Yes (Hospitalization)
  Sender: FDA-Public Use
  Company Number: None

PATIENT
  Age: 65 Year
  Sex: Male

DRUGS (5)
  1. LENALIDOMIDE [Suspect]
     Active Substance: LENALIDOMIDE
     Indication: Plasma cell myeloma
     Dosage: OTHER FREQUENCY : D1-14 7OFF, REPEAT;?
     Route: 048
     Dates: start: 20230914
  2. BACLOFEN [Concomitant]
     Active Substance: BACLOFEN
  3. REVLIMID [Concomitant]
     Active Substance: LENALIDOMIDE
  4. TYLENOL [Concomitant]
     Active Substance: ACETAMINOPHEN
  5. VENTOLIN HFA AER [Concomitant]

REACTIONS (2)
  - Hypothyroidism [None]
  - Dehydration [None]

NARRATIVE: CASE EVENT DATE: 20230714
